FAERS Safety Report 21776422 (Version 2)
Quarter: 2023Q1

REPORT INFORMATION
  Report Type: Report from Study
  Country: ES (occurrence: None)
  Receive Date: 20221226
  Receipt Date: 20230104
  Transmission Date: 20230418
  Serious: Yes (Life-Threatening, Hospitalization)
  Sender: FDA-Public Use
  Company Number: ES-ROCHE-3247635

PATIENT
  Age: 72 Year
  Sex: Male

DRUGS (4)
  1. CABOZANTINIB [Suspect]
     Active Substance: CABOZANTINIB
     Indication: Hormone-refractory prostate cancer
     Dosage: 14/DEC/2022, THE PATIENT RECEIVED THE MOST RECENT DOSE OF XL184 PRIOR TO THE SAE.
     Route: 048
     Dates: start: 20221028
  2. ATEZOLIZUMAB [Suspect]
     Active Substance: ATEZOLIZUMAB
     Indication: Hormone-refractory prostate cancer
     Dosage: 18/NOV/2022, THE PATIENT RECEIVED THE MOST RECENT DOSE OF ATEZOLIZUMAB PRIOR TO THE SAE.
     Route: 041
     Dates: start: 20221028
  3. BICALUTAMIDE [Concomitant]
     Active Substance: BICALUTAMIDE
  4. APALUTAMIDE [Concomitant]
     Active Substance: APALUTAMIDE

REACTIONS (2)
  - Decreased appetite [Recovered/Resolved]
  - Pulmonary embolism [Recovering/Resolving]

NARRATIVE: CASE EVENT DATE: 20221214
